FAERS Safety Report 17063612 (Version 2)
Quarter: 2019Q4

REPORT INFORMATION
  Report Type: Report from Study
  Country: CA (occurrence: CA)
  Receive Date: 20191122
  Receipt Date: 20191216
  Transmission Date: 20200122
  Serious: No
  Sender: FDA-Public Use
  Company Number: CA-BEH-2019109752

PATIENT
  Age: 45 Year
  Sex: Female

DRUGS (2)
  1. HIZENTRA [Suspect]
     Active Substance: HUMAN IMMUNOGLOBULIN G
     Dosage: 10 GRAM, TOT
     Route: 058
     Dates: start: 20191201, end: 20191201
  2. HIZENTRA [Suspect]
     Active Substance: HUMAN IMMUNOGLOBULIN G
     Indication: PRIMARY IMMUNODEFICIENCY SYNDROME
     Dosage: 10 GRAM, QW
     Route: 058
     Dates: start: 20191108

REACTIONS (5)
  - Paraesthesia [Recovered/Resolved]
  - Headache [Recovered/Resolved with Sequelae]
  - Infusion site pruritus [Recovered/Resolved with Sequelae]
  - Dizziness [Recovered/Resolved]
  - Infusion site erythema [Recovered/Resolved with Sequelae]

NARRATIVE: CASE EVENT DATE: 20191201
